FAERS Safety Report 18911487 (Version 1)
Quarter: 2021Q1

REPORT INFORMATION
  Report Type: Spontaneous
  Country: US (occurrence: US)
  Receive Date: 20210218
  Receipt Date: 20210218
  Transmission Date: 20210420
  Serious: No
  Sender: FDA-Public Use
  Company Number: NVSC2021US031093

PATIENT

DRUGS (3)
  1. OCTREOTIDE. [Suspect]
     Active Substance: OCTREOTIDE
  2. OCTREOTIDE. [Suspect]
     Active Substance: OCTREOTIDE
     Indication: CARCINOID SYNDROME
     Dosage: UNK UNK, QMO
     Route: 065
     Dates: start: 20210208
  3. OCTREOTIDE. [Suspect]
     Active Substance: OCTREOTIDE

REACTIONS (2)
  - Drug ineffective [Unknown]
  - Product use complaint [Unknown]
